APPROVED DRUG PRODUCT: CICLOPIROX
Active Ingredient: CICLOPIROX
Strength: 8%
Dosage Form/Route: SOLUTION;TOPICAL
Application: A078567 | Product #001
Applicant: MYLAN PHARMACEUTICALS INC
Approved: Sep 18, 2007 | RLD: No | RS: No | Type: DISCN